FAERS Safety Report 5346825-X (Version None)
Quarter: 2007Q2

REPORT INFORMATION
  Report Type: 
  Country: None (occurrence: None)
  Receive Date: 20070604
  Receipt Date: 20070522
  Transmission Date: 20071010
  Serious: Yes (Death, Other)
  Sender: FDA-Public Use
  Company Number: 2007-01028

PATIENT
  Age: 46 Year
  Sex: Male
  Weight: 81 kg

DRUGS (1)
  1. VELCADE [Suspect]
     Indication: MULTIPLE MYELOMA

REACTIONS (6)
  - CONCOMITANT DISEASE PROGRESSION [None]
  - FLUID OVERLOAD [None]
  - LEUKAEMIA PLASMACYTIC [None]
  - PLASMACYTOMA [None]
  - RENAL FAILURE [None]
  - RESPIRATORY FAILURE [None]
